FAERS Safety Report 5048567-7 (Version None)
Quarter: 2006Q3

REPORT INFORMATION
  Report Type: 
  Country: None (occurrence: None)
  Receive Date: 20060705
  Receipt Date: 20060613
  Transmission Date: 20061208
  Serious: Yes (Other)
  Sender: FDA-Public Use
  Company Number: CA200606003779

PATIENT
  Sex: Female

DRUGS (3)
  1. HUMULIN L [Suspect]
     Indication: DIABETES MELLITUS
     Dosage: AS NEEDED, SUBCUTANEOUS
     Route: 058
     Dates: start: 19930101
  2. COZAAR [Concomitant]
  3. DILANTIN [Concomitant]

REACTIONS (7)
  - AMNESIA [None]
  - COLD SWEAT [None]
  - COMA [None]
  - CONVULSION [None]
  - MALAISE [None]
  - NAUSEA [None]
  - SYNCOPE [None]
